FAERS Safety Report 17661341 (Version 1)
Quarter: 2020Q2

REPORT INFORMATION
  Report Type: Spontaneous
  Country: US (occurrence: US)
  Receive Date: 20200410
  Receipt Date: 20200410
  Transmission Date: 20200713
  Serious: Yes (Hospitalization)
  Sender: FDA-Public Use
  Company Number: None

PATIENT
  Age: 21 Year
  Sex: Female
  Weight: 125.4 kg

DRUGS (22)
  1. PREDNISONE. [Concomitant]
     Active Substance: PREDNISONE
  2. PROTONIX [Concomitant]
     Active Substance: PANTOPRAZOLE SODIUM
  3. ETHINYL ESTRADIOL-LEVONORGESTREL [Concomitant]
  4. LORAZEPAM. [Concomitant]
     Active Substance: LORAZEPAM
  5. DAUNORUBICIN [Suspect]
     Active Substance: DAUNORUBICIN
     Dates: end: 20200402
  6. FAMOTIDINE. [Concomitant]
     Active Substance: FAMOTIDINE
  7. VINCRISTINE [Concomitant]
     Active Substance: VINCRISTINE
  8. MELATONIN [Concomitant]
     Active Substance: MELATONIN
  9. BACTRIM [Concomitant]
     Active Substance: SULFAMETHOXAZOLE\TRIMETHOPRIM
  10. LEVOVARNITINE [Concomitant]
  11. MORPHINE [Concomitant]
     Active Substance: MORPHINE
  12. MULTIVITAMIN WITH MINERALS [Concomitant]
     Active Substance: MINERALS\VITAMINS
  13. IMATINIB. [Concomitant]
     Active Substance: IMATINIB MESYLATE
  14. ACTIGALL [Concomitant]
     Active Substance: URSODIOL
  15. METHOTREXATE. [Concomitant]
     Active Substance: METHOTREXATE
  16. PEGASPARGASE [Concomitant]
     Active Substance: PEGASPARGASE
  17. MEROPENEM. [Concomitant]
     Active Substance: MEROPENEM
  18. KYTRIL [Concomitant]
     Active Substance: GRANISETRON HYDROCHLORIDE
  19. CHOLECALCIFEROL [Concomitant]
     Active Substance: CHOLECALCIFEROL
  20. MICAFUNGIN. [Concomitant]
     Active Substance: MICAFUNGIN SODIUM
  21. CALCIUM CARBONATE. [Concomitant]
     Active Substance: CALCIUM CARBONATE
  22. ONDANSERTRON [Concomitant]

REACTIONS (9)
  - Aspartate aminotransferase increased [None]
  - Hepatomegaly [None]
  - Pancreatitis [None]
  - Blood bilirubin increased [None]
  - Gamma-glutamyltransferase increased [None]
  - Seizure [None]
  - Cholecystitis [None]
  - Haemorrhage intracranial [None]
  - Alanine aminotransferase increased [None]

NARRATIVE: CASE EVENT DATE: 20200406
